FAERS Safety Report 8302570-X (Version None)
Quarter: 2012Q2

REPORT INFORMATION
  Report Type: 
  Country: None (occurrence: None)
  Receive Date: 20120420
  Receipt Date: 20120412
  Transmission Date: 20120825
  Serious: Yes (Hospitalization, Other)
  Sender: FDA-Public Use
  Company Number: US-ELI_LILLY_AND_COMPANY-US201203000924

PATIENT
  Sex: Female
  Weight: 58.957 kg

DRUGS (6)
  1. ALIMTA [Suspect]
     Indication: NON-SMALL CELL LUNG CANCER METASTATIC
     Dosage: 480 MG/M2, EVERY 3WEEKS
     Route: 042
     Dates: start: 20111110, end: 20111230
  2. FOLIC ACID [Concomitant]
     Dosage: 1 MG, UNK
     Route: 048
     Dates: start: 20111028, end: 20111230
  3. VITAMIN B-12 [Concomitant]
     Dosage: 1 MG, UNK
     Route: 030
     Dates: start: 20111028, end: 20111230
  4. CORTICOSTEROIDS [Concomitant]
     Dosage: 10 MG, UNK
     Route: 042
     Dates: start: 20111110
  5. CARBOPLATIN [Concomitant]
     Indication: NON-SMALL CELL LUNG CANCER METASTATIC
  6. CORTICOSTEROIDS [Concomitant]
     Dosage: 4 MBQ, UNK
     Route: 048
     Dates: end: 20120103

REACTIONS (3)
  - PANCYTOPENIA [None]
  - CREATININE RENAL CLEARANCE DECREASED [None]
  - HAEMORRHAGE [None]
